FAERS Safety Report 19981196 (Version 2)
Quarter: 2021Q4

REPORT INFORMATION
  Report Type: Spontaneous
  Country: US (occurrence: US)
  Receive Date: 20211021
  Receipt Date: 20211029
  Transmission Date: 20220303
  Serious: Yes (Death, Other)
  Sender: FDA-Public Use
  Company Number: US-PFIZER INC-202100999326

PATIENT
  Age: 91 Year
  Sex: Female

DRUGS (1)
  1. IBRANCE [Suspect]
     Active Substance: PALBOCICLIB
     Dosage: 125 MG
     Dates: start: 20210721

REACTIONS (4)
  - Death [Fatal]
  - Product prescribing error [Unknown]
  - Nausea [Unknown]
  - Fatigue [Unknown]
